FAERS Safety Report 11885664 (Version 1)
Quarter: 2016Q1

REPORT INFORMATION
  Report Type: Spontaneous
  Country: IT (occurrence: IT)
  Receive Date: 20160104
  Receipt Date: 20160104
  Transmission Date: 20160526
  Serious: Yes (Hospitalization)
  Sender: FDA-Public Use
  Company Number: IT-ABBVIE-16P-083-1530762-00

PATIENT
  Age: 9 Year
  Sex: Female

DRUGS (1)
  1. DEPAKIN [Suspect]
     Active Substance: VALPROATE SODIUM
     Indication: EPILEPSY
     Dosage: DAILY
     Route: 048
     Dates: start: 20150401, end: 20151222

REACTIONS (6)
  - Dyspnoea exertional [Recovering/Resolving]
  - Hyperhidrosis [Recovering/Resolving]
  - Hyperphagia [Recovering/Resolving]
  - Weight increased [Recovering/Resolving]
  - Headache [Recovering/Resolving]
  - Alopecia [Recovering/Resolving]

NARRATIVE: CASE EVENT DATE: 20151107
